FAERS Safety Report 5292567-9 (Version None)
Quarter: 2007Q2

REPORT INFORMATION
  Report Type: 
  Country: None (occurrence: None)
  Receive Date: 20070404
  Receipt Date: 20070322
  Transmission Date: 20071010
  Serious: Yes (Other)
  Sender: FDA-Public Use
  Company Number: POMP-10944

PATIENT
  Age: 40 Year
  Sex: Male

DRUGS (2)
  1. MYOZYME [Suspect]
     Indication: GLYCOGEN STORAGE DISEASE TYPE II
     Dosage: 1300 MG Q2WKS IV
     Route: 042
     Dates: start: 20061003, end: 20070124
  2. NO CONCOMITANT MEDICATIONS WERE PROVIDED [Concomitant]

REACTIONS (4)
  - HYPERCOAGULATION [None]
  - PAIN IN EXTREMITY [None]
  - PROTEIN S ABNORMAL [None]
  - VENOUS OCCLUSION [None]
